FAERS Safety Report 6946786 (Version 5)
Quarter: 2013Q2

REPORT INFORMATION
  Report Type: Report from Study
  Country: DE (occurrence: DE)
  Receive Date: 20090320
  Receipt Date: 20130607
  Transmission Date: 20140414
  Serious: Yes (Other)
  Sender: FDA-Public Use
  Company Number: DE-NOVOPROD-285083

PATIENT
  Age: 47 Year
  Sex: Male
  Weight: 98.1 kg

DRUGS (7)
  1. NORDITROPIN [Suspect]
     Indication: HYPOPITUITARISM
     Dosage: .2 MG, QD
     Route: 058
     Dates: start: 20080813, end: 20090313
  2. NORDITROPIN [Suspect]
     Dosage: .2 MG, QD
     Route: 058
     Dates: start: 20090710
  3. NORPROLAC [Concomitant]
     Dosage: 75 UG, QD
     Route: 048
     Dates: start: 2003
  4. HYDROCORTISON                      /00028601/ [Concomitant]
     Dosage: 15 MG, QD
     Route: 048
     Dates: start: 2006
  5. MOXONIDIN [Concomitant]
     Dosage: .4 MG, QD
     Route: 048
     Dates: start: 2002
  6. ACCUZIDE [Concomitant]
     Dosage: 20 MG, QD
     Route: 048
     Dates: start: 2002
  7. NORVASC                            /00972401/ [Concomitant]
     Dosage: 5 MG, QD
     Route: 048
     Dates: start: 2002

REACTIONS (1)
  - Enchondroma [Not Recovered/Not Resolved]
